FAERS Safety Report 5932723-7 (Version None)
Quarter: 2008Q4

REPORT INFORMATION
  Report Type: 
  Country: None (occurrence: None)
  Receive Date: 20081023
  Receipt Date: 20081013
  Transmission Date: 20090506
  Serious: Yes (Other)
  Sender: FDA-Public Use
  Company Number: 1000001381

PATIENT
  Sex: Female

DRUGS (3)
  1. MEMANTINE HCL [Suspect]
     Dosage: 20 MG, (20 MG, 1 IN 1 D), ORAL
     Route: 048
  2. MEMANTINE HCL [Suspect]
     Dosage: 10 MG, (10 MG, 1 IN 1 D), ORAL
     Route: 048
  3. EQUANIL [Concomitant]

REACTIONS (1)
  - EPILEPSY [None]
